FAERS Safety Report 7511956-2 (Version None)
Quarter: 2011Q2

REPORT INFORMATION
  Report Type: 
  Country: None (occurrence: None)
  Receive Date: 20110531
  Receipt Date: 20110517
  Transmission Date: 20111010
  Serious: Yes (Hospitalization)
  Sender: FDA-Public Use
  Company Number: PHHY2011ES42283

PATIENT
  Age: 43 Year
  Sex: Male

DRUGS (2)
  1. RASILEZ [Suspect]
     Indication: HYPERTENSION
     Dosage: 300 MG, UNK
     Route: 048
     Dates: start: 20110510
  2. FENOFIBRATE [Suspect]
     Indication: HYPERTENSION
     Dosage: 145 MG, UNK
     Route: 048
     Dates: start: 20110510

REACTIONS (4)
  - EXTRAPYRAMIDAL DISORDER [None]
  - VISUAL IMPAIRMENT [None]
  - PARAESTHESIA [None]
  - SPEECH DISORDER [None]
